FAERS Safety Report 5622288-1 (Version None)
Quarter: 2008Q1

REPORT INFORMATION
  Report Type: 
  Country: None (occurrence: None)
  Receive Date: 20080114
  Receipt Date: 20070928
  Transmission Date: 20080703
  Serious: Yes (Hospitalization)
  Sender: FDA-Public Use
  Company Number: A03200705832

PATIENT
  Age: 75 Year
  Sex: Female

DRUGS (2)
  1. PLAVIX [Suspect]
     Indication: ACUTE CORONARY SYNDROME
     Dosage: 75 MG QD - ORAL
     Route: 048
     Dates: start: 20070901
  2. PLAVIX [Suspect]
     Indication: MYOCARDIAL INFARCTION
     Dosage: 75 MG QD - ORAL
     Route: 048
     Dates: start: 20070901

REACTIONS (5)
  - DRUG INEFFECTIVE [None]
  - ELECTROCARDIOGRAM ST SEGMENT DEPRESSION [None]
  - MYOCARDIAL INFARCTION [None]
  - TROPONIN INCREASED [None]
  - VENTRICULAR TACHYCARDIA [None]
